FAERS Safety Report 23126852 (Version 1)
Quarter: 2023Q4

REPORT INFORMATION
  Report Type: Spontaneous
  Country: FR (occurrence: FR)
  Receive Date: 20231030
  Receipt Date: 20231030
  Transmission Date: 20240110
  Serious: Yes (Hospitalization, Other)
  Sender: FDA-Public Use
  Company Number: FR-Santen Oy-2023-FRA-002733

PATIENT
  Age: 84 Year
  Sex: Female

DRUGS (4)
  1. TIMOLOL MALEATE [Suspect]
     Active Substance: TIMOLOL MALEATE
     Indication: Product used for unknown indication
     Dosage: TWICE A DAY, MORNING AT NIGHT, WITH 12 HOURS INTERVALS (AT 9:30 AM AND 21:30), IN BOTH EYES, EVERYDA
     Route: 065
     Dates: start: 20221210
  2. Hylo confort [Concomitant]
     Indication: Product used for unknown indication
     Dosage: 2 OR 3 TIMES A DAY
     Route: 065
  3. LEVOTHYROXINE [Concomitant]
     Active Substance: LEVOTHYROXINE
     Indication: Product used for unknown indication
     Dosage: 100MG
     Route: 065
  4. TRANXENE [Concomitant]
     Active Substance: CLORAZEPATE DIPOTASSIUM
     Indication: Product used for unknown indication
     Dosage: 5 MG (TWICE DAILY)
     Route: 065

REACTIONS (21)
  - Hospitalisation [Unknown]
  - Fall [Unknown]
  - Presyncope [Unknown]
  - Tongue paralysis [Unknown]
  - Tremor [Recovered/Resolved]
  - Fatigue [Unknown]
  - Abdominal pain upper [Unknown]
  - Dry mouth [Recovered/Resolved]
  - Delayed light adaptation [Unknown]
  - Dysgeusia [Unknown]
  - Nightmare [Unknown]
  - Muscular weakness [Recovered/Resolved]
  - Agitation [Recovered/Resolved]
  - Malaise [Recovered/Resolved]
  - Epistaxis [Unknown]
  - Dry eye [Unknown]
  - Pigmentation disorder [Unknown]
  - Asthenia [Recovered/Resolved]
  - Anxiety [Recovered/Resolved]
  - Accidental overdose [Unknown]
  - Product delivery mechanism issue [Unknown]

NARRATIVE: CASE EVENT DATE: 20221201
